FAERS Safety Report 13225351 (Version 1)
Quarter: 2017Q1

REPORT INFORMATION
  Report Type: Spontaneous
  Country: US (occurrence: US)
  Receive Date: 20170213
  Receipt Date: 20170213
  Transmission Date: 20170428
  Serious: Yes (Other)
  Sender: FDA-Public Use
  Company Number: US-AMGEN-USASP2017020589

PATIENT
  Age: 64 Year
  Sex: Male

DRUGS (3)
  1. PROLIA [Suspect]
     Active Substance: DENOSUMAB
     Indication: BONE LOSS
  2. PROLIA [Suspect]
     Active Substance: DENOSUMAB
     Indication: PROSTATE CANCER
     Dosage: UNK , Q6MO
     Route: 065
     Dates: start: 201605
  3. FIRMAGON [Concomitant]
     Active Substance: DEGARELIX ACETATE

REACTIONS (3)
  - Full blood count decreased [Unknown]
  - Neutropenia [Unknown]
  - Thrombocytopenia [Unknown]
